FAERS Safety Report 10744522 (Version 1)
Quarter: 2015Q1

REPORT INFORMATION
  Report Type: Spontaneous
  Country: US (occurrence: None)
  Receive Date: 20150126
  Receipt Date: 20150126
  Transmission Date: 20150721
  Serious: Yes (Other)
  Sender: FDA-Public Use
  Company Number: None

PATIENT
  Age: 56 Year
  Sex: Female
  Weight: 65.77 kg

DRUGS (1)
  1. EPINEPHRINE. [Suspect]
     Active Substance: EPINEPHRINE
     Indication: TOOTH EXTRACTION
     Dosage: INJECTED INTO THE GUMS
     Dates: start: 20141204, end: 20150101

REACTIONS (5)
  - Tremor [None]
  - Confusional state [None]
  - Anxiety [None]
  - Blood pressure systolic increased [None]
  - Heart rate irregular [None]

NARRATIVE: CASE EVENT DATE: 20141204
